FAERS Safety Report 24534007 (Version 1)
Quarter: 2024Q4

REPORT INFORMATION
  Report Type: Spontaneous
  Country: FR (occurrence: FR)
  Receive Date: 20241022
  Receipt Date: 20241022
  Transmission Date: 20250114
  Serious: Yes (Life-Threatening)
  Sender: WAYLIS THERAPEUTICS LLC
  Company Number: None

PATIENT
  Age: 20 Year
  Sex: Male
  Weight: 60 kg

DRUGS (4)
  1. DIAZEPAM [Suspect]
     Active Substance: DIAZEPAM
     Indication: Poisoning deliberate
     Dosage: ; IN TOTAL
     Route: 050
     Dates: start: 20240804, end: 20240804
  2. CYAMEMAZINE [Suspect]
     Active Substance: CYAMEMAZINE
     Indication: Poisoning deliberate
     Dosage: ; IN TOTAL
     Route: 050
     Dates: start: 20240804, end: 20240804
  3. ALPRAZOLAM [Suspect]
     Active Substance: ALPRAZOLAM
     Indication: Poisoning deliberate
     Dosage: ; IN TOTAL
     Route: 050
     Dates: start: 20240804, end: 20240804
  4. LORMETAZEPAM [Suspect]
     Active Substance: LORMETAZEPAM
     Indication: Poisoning deliberate
     Dosage: ; IN TOTAL
     Route: 050
     Dates: start: 20240804, end: 20240804

REACTIONS (6)
  - Coma [Recovered/Resolved]
  - Acute respiratory distress syndrome [Recovered/Resolved]
  - Hepatic cytolysis [Recovered/Resolved]
  - Acute kidney injury [Recovered/Resolved]
  - Rhabdomyolysis [Recovered/Resolved]
  - Poisoning deliberate [Recovered/Resolved]

NARRATIVE: CASE EVENT DATE: 20240805
